FAERS Safety Report 18222231 (Version 1)
Quarter: 2020Q3

REPORT INFORMATION
  Report Type: Spontaneous
  Country: FR (occurrence: FR)
  Receive Date: 20200902
  Receipt Date: 20200902
  Transmission Date: 20201103
  Serious: Yes (Life-Threatening)
  Sender: FDA-Public Use
  Company Number: FR-TEVA-2020-FR-1821373

PATIENT
  Age: 96 Year
  Sex: Female
  Weight: 54 kg

DRUGS (12)
  1. PROPRANOLOL [Suspect]
     Active Substance: PROPRANOLOL HYDROCHLORIDE
     Indication: WRONG PATIENT RECEIVED PRODUCT
     Dosage: 40MG
     Route: 048
     Dates: start: 20200710, end: 20200710
  2. TANAKAN [Suspect]
     Active Substance: GINKGO
     Indication: WRONG PATIENT RECEIVED PRODUCT
     Route: 048
     Dates: start: 20200710, end: 20200710
  3. KEPPRA [Suspect]
     Active Substance: LEVETIRACETAM
     Route: 048
     Dates: start: 20200710, end: 20200710
  4. TEGRETOL [Suspect]
     Active Substance: CARBAMAZEPINE
     Route: 048
     Dates: start: 20200710, end: 20200710
  5. KEPPRA [Suspect]
     Active Substance: LEVETIRACETAM
     Indication: WRONG PATIENT RECEIVED PRODUCT
     Dosage: 2 DOSAGE FORMS
     Route: 048
     Dates: start: 20200710, end: 20200710
  6. PREVISCAN [Concomitant]
     Dosage: ACCORDING TO INR
  7. TEGRETOL [Suspect]
     Active Substance: CARBAMAZEPINE
     Indication: WRONG PATIENT RECEIVED PRODUCT
     Dosage: 2 DOSAGE FORMS
     Route: 048
     Dates: start: 20200710, end: 20200710
  8. ALPRAZOLAM. [Concomitant]
     Active Substance: ALPRAZOLAM
     Dosage: 0.25MG
  9. AMLODIPINE [Concomitant]
     Active Substance: AMLODIPINE BESYLATE
     Dosage: 5MG
  10. ATORVASTATINE [Concomitant]
     Active Substance: ATORVASTATIN
     Dosage: 20MG
  11. TRIATEC 10 MG, COMPRIME SECABLE [Concomitant]
     Dosage: 10MG
  12. SOTALOL (CHLORHYDRATE DE) [Concomitant]
     Active Substance: SOTALOL
     Dosage: 80MG

REACTIONS (2)
  - Acute pulmonary oedema [Recovering/Resolving]
  - Wrong patient received product [Recovered/Resolved]

NARRATIVE: CASE EVENT DATE: 20200711
